FAERS Safety Report 20896653 (Version 4)
Quarter: 2022Q4

REPORT INFORMATION
  Report Type: Spontaneous
  Country: CA (occurrence: CA)
  Receive Date: 20220531
  Receipt Date: 20221229
  Transmission Date: 20230113
  Serious: Yes (Hospitalization, Other)
  Sender: FDA-Public Use
  Company Number: CA-MLMSERVICE-20220518-3558308-1

PATIENT
  Age: 9 Decade
  Sex: Male

DRUGS (11)
  1. DOXORUBICIN HYDROCHLORIDE [Suspect]
     Active Substance: DOXORUBICIN HYDROCHLORIDE
     Indication: Diffuse large B-cell lymphoma
     Dosage: 25 MG/M2, CYCLIC, 6 CYCLE
  2. DOXORUBICIN HYDROCHLORIDE [Suspect]
     Active Substance: DOXORUBICIN HYDROCHLORIDE
     Indication: Adenocarcinoma of colon
  3. RITUXIMAB [Suspect]
     Active Substance: RITUXIMAB
     Indication: Diffuse large B-cell lymphoma
     Dosage: 375 MG/M2, CYCLIC 6 CYCLE
  4. RITUXIMAB [Suspect]
     Active Substance: RITUXIMAB
     Indication: Adenocarcinoma of colon
  5. VINCRISTINE SULFATE [Suspect]
     Active Substance: VINCRISTINE SULFATE
     Indication: Diffuse large B-cell lymphoma
     Dosage: 1 MG, CYCLIC 6 CYCLE
  6. VINCRISTINE SULFATE [Suspect]
     Active Substance: VINCRISTINE SULFATE
     Indication: Adenocarcinoma of colon
  7. PREDNISOLONE [Suspect]
     Active Substance: PREDNISOLONE
     Indication: Diffuse large B-cell lymphoma
     Dosage: 40 MG/M2, CYCLIC 6 CYCLE
  8. PREDNISOLONE [Suspect]
     Active Substance: PREDNISOLONE
     Indication: Adenocarcinoma of colon
  9. CYCLOPHOSPHAMIDE [Suspect]
     Active Substance: CYCLOPHOSPHAMIDE
     Indication: Adenoma benign
     Dosage: 400 MG/M2, CYCLIC 6 CYCLE
  10. CYCLOPHOSPHAMIDE [Suspect]
     Active Substance: CYCLOPHOSPHAMIDE
     Indication: Adenocarcinoma of colon
  11. FILGRASTIM [Concomitant]
     Active Substance: FILGRASTIM
     Indication: Prophylaxis
     Dosage: UNK

REACTIONS (4)
  - Pleural effusion [Unknown]
  - Diarrhoea [Unknown]
  - Candida infection [Unknown]
  - Device related thrombosis [Unknown]
